FAERS Safety Report 24252839 (Version 2)
Quarter: 2024Q3

REPORT INFORMATION
  Report Type: Spontaneous
  Country: CA (occurrence: CA)
  Receive Date: 20240827
  Receipt Date: 20240927
  Transmission Date: 20241017
  Serious: Yes (Other)
  Sender: CELLTRION
  Company Number: CA-PFIZER INC-202400240386

PATIENT

DRUGS (5)
  1. INFLECTRA [Suspect]
     Active Substance: INFLIXIMAB-DYYB
     Indication: Colitis ulcerative
     Dosage: 600 MG
     Route: 042
     Dates: start: 20240712
  2. INFLECTRA [Suspect]
     Active Substance: INFLIXIMAB-DYYB
     Dosage: 300 MG, AFTER 5 WEEKS AND 3 DAYS (PRESCRIBED 600 MG, EVERY 4 WEEKS)
     Route: 042
     Dates: start: 20240819
  3. INFLECTRA [Suspect]
     Active Substance: INFLIXIMAB-DYYB
     Dosage: 300 MG 4 WEEKS AND 1 DAY (PRESCRIBED 600 MG, EVERY 4 WEEKS)
     Route: 042
     Dates: start: 20240917
  4. MESALAMINE [Concomitant]
     Active Substance: MESALAMINE
     Dosage: UNK
  5. RYBELSUS [Concomitant]
     Active Substance: SEMAGLUTIDE
     Dosage: UNK

REACTIONS (3)
  - Condition aggravated [Recovered/Resolved]
  - Inappropriate schedule of product administration [Unknown]
  - Incorrect dose administered [Unknown]

NARRATIVE: CASE EVENT DATE: 20240819
